FAERS Safety Report 10155540 (Version 1)
Quarter: 2014Q2

REPORT INFORMATION
  Report Type: Report from Study
  Country: US (occurrence: US)
  Receive Date: 20140506
  Receipt Date: 20140506
  Transmission Date: 20141212
  Serious: Yes (Hospitalization, Other)
  Sender: FDA-Public Use
  Company Number: PHHY2014US052039

PATIENT
  Age: 61 Year
  Sex: Female

DRUGS (9)
  1. EVEROLIMUS [Suspect]
     Indication: CLEAR CELL RENAL CELL CARCINOMA
     Dosage: 10 MG, PER DAY
     Route: 048
     Dates: start: 20131115, end: 20140220
  2. CIPROFLOXACIN [Concomitant]
  3. FLAGYL [Concomitant]
  4. ZOFRAN [Concomitant]
  5. NORMAL SALINE [Concomitant]
  6. PROTONIX [Concomitant]
  7. VALIUM [Concomitant]
  8. MAGNESIUM [Concomitant]
  9. KCL RETARD ZYMA [Concomitant]

REACTIONS (9)
  - Small intestinal obstruction [Recovered/Resolved]
  - Nausea [Unknown]
  - Vomiting [Unknown]
  - Abdominal pain [Unknown]
  - Ileus [Unknown]
  - Hyperglycaemia [Unknown]
  - Blood magnesium decreased [Unknown]
  - Diarrhoea [Unknown]
  - Blood potassium decreased [Unknown]
